FAERS Safety Report 7530963-7 (Version None)
Quarter: 2011Q2

REPORT INFORMATION
  Report Type: 
  Country: None (occurrence: None)
  Receive Date: 20110531
  Receipt Date: 20110516
  Transmission Date: 20111010
  Serious: Yes (Death, Hospitalization)
  Sender: FDA-Public Use
  Company Number: 2011MA005947

PATIENT
  Age: 57 Year
  Sex: Female

DRUGS (3)
  1. DIAZEPAM [Suspect]
     Indication: DEPRESSION
  2. TIANEPTINE [Concomitant]
  3. ESTAZOLAM [Concomitant]

REACTIONS (11)
  - SUDDEN DEATH [None]
  - ARRHYTHMIA [None]
  - MITRAL VALVE PROLAPSE [None]
  - TOXICITY TO VARIOUS AGENTS [None]
  - DEPRESSION [None]
  - LEFT ATRIAL DILATATION [None]
  - LEFT VENTRICULAR DYSFUNCTION [None]
  - LYMPHOCYTIC INFILTRATION [None]
  - SUDDEN CARDIAC DEATH [None]
  - LEFT VENTRICULAR HYPERTROPHY [None]
  - PULMONARY CONGESTION [None]
